FAERS Safety Report 5555182-5 (Version None)
Quarter: 2007Q4

REPORT INFORMATION
  Report Type: 
  Country: None (occurrence: None)
  Receive Date: 20071213
  Receipt Date: 20070810
  Transmission Date: 20080405
  Serious: No
  Sender: FDA-Public Use
  Company Number: US-AMGEN-KDL238336

PATIENT
  Sex: Female

DRUGS (1)
  1. ENBREL [Suspect]
     Indication: RHEUMATOID ARTHRITIS
     Dates: start: 20070201, end: 20070315

REACTIONS (4)
  - CHILLS [None]
  - HYPERHIDROSIS [None]
  - NAIL DISORDER [None]
  - PYREXIA [None]
